FAERS Safety Report 26195862 (Version 1)
Quarter: 2025Q4

REPORT INFORMATION
  Report Type: Report from Study
  Country: CA (occurrence: CA)
  Receive Date: 20251224
  Receipt Date: 20251224
  Transmission Date: 20260118
  Serious: Yes (Hospitalization, Other)
  Sender: APOTEX
  Company Number: CA-PGRTD-001133273

PATIENT
  Age: 74 Year
  Sex: Male

DRUGS (7)
  1. APIXABAN [Suspect]
     Active Substance: APIXABAN
     Indication: Anticoagulant therapy
     Dosage: UNK
     Route: 065
  2. ELIGARD [Suspect]
     Active Substance: LEUPROLIDE ACETATE
     Indication: Prostate cancer
     Dosage: UNK
     Route: 065
  3. ELIGARD [Suspect]
     Active Substance: LEUPROLIDE ACETATE
     Dosage: 45 MILLIGRAM, 1 EVERY 6 MONTHS
  4. MORPHINE [Suspect]
     Active Substance: MORPHINE
     Indication: Pain
     Dosage: UNK
     Route: 065
  5. MORPHINE [Suspect]
     Active Substance: MORPHINE
     Indication: Procedural pain
  6. CORTISONE [Concomitant]
     Active Substance: CORTISONE
     Indication: Product used for unknown indication
     Route: 065
  7. UNSPECIFIED INGREDIENT [Concomitant]
     Active Substance: UNSPECIFIED INGREDIENT
     Indication: Product used for unknown indication

REACTIONS (18)
  - Confusional state [Unknown]
  - Lung neoplasm malignant [Unknown]
  - Back pain [Unknown]
  - Urinary retention [Unknown]
  - Dysuria [Unknown]
  - Metastases to bone [Unknown]
  - Cystitis [Unknown]
  - Pyrexia [Unknown]
  - Infection [Unknown]
  - Headache [Unknown]
  - Radiation injury [Unknown]
  - Urinary incontinence [Unknown]
  - Procedural pain [Unknown]
  - Bone pain [Unknown]
  - Intentional product use issue [Unknown]
  - Cerebral haemorrhage [Unknown]
  - Haemorrhage urinary tract [Unknown]
  - Haematuria [Unknown]
